FAERS Safety Report 25828434 (Version 3)
Quarter: 2025Q4

REPORT INFORMATION
  Report Type: Spontaneous
  Country: EU (occurrence: EU)
  Receive Date: 20250921
  Receipt Date: 20251106
  Transmission Date: 20260118
  Serious: Yes (Hospitalization, Other)
  Sender: SANDOZ
  Company Number: None

PATIENT
  Age: 76 Year
  Sex: Female
  Weight: 57 kg

DRUGS (15)
  1. INSULIN GLARGINE [Suspect]
     Active Substance: INSULIN GLARGINE
     Dosage: 16 IU, QD
     Route: 058
     Dates: start: 202501, end: 2025
  2. INSULIN GLARGINE [Suspect]
     Active Substance: INSULIN GLARGINE
     Dosage: 26 IU, QD
     Route: 058
     Dates: start: 2025, end: 202507
  3. INSULIN GLARGINE [Suspect]
     Active Substance: INSULIN GLARGINE
     Dosage: 28 IU, QD
     Route: 058
     Dates: start: 202507, end: 2025
  4. INSULIN GLARGINE [Suspect]
     Active Substance: INSULIN GLARGINE
     Dosage: 28 IU, QD
     Route: 058
     Dates: start: 202507, end: 2025
  5. INSULIN GLARGINE [Suspect]
     Active Substance: INSULIN GLARGINE
     Dosage: 30 IU, QD
     Route: 058
     Dates: start: 20250715, end: 20250716
  6. INSULIN GLARGINE [Suspect]
     Active Substance: INSULIN GLARGINE
     Indication: Type 2 diabetes mellitus
     Dosage: 24 IU, QD
     Route: 058
     Dates: start: 20240417, end: 202501
  7. INSULIN GLARGINE [Suspect]
     Active Substance: INSULIN GLARGINE
     Dosage: 30 IU, QD
     Route: 058
     Dates: start: 20250715, end: 20250716
  8. INSULIN HUMAN [Suspect]
     Active Substance: INSULIN HUMAN
     Indication: Type 2 diabetes mellitus
     Dosage: UNK
     Route: 065
  9. NITROGLYCERIN [Suspect]
     Active Substance: NITROGLYCERIN
     Indication: Cardiac disorder
     Dosage: UNK, QD
     Route: 065
  10. PYLERA [Suspect]
     Active Substance: BISMUTH SUBCITRATE POTASSIUM\METRONIDAZOLE\TETRACYCLINE HYDROCHLORIDE
     Indication: Product used for unknown indication
     Dosage: 120 TABLETS/10 DAYS DAILY
     Route: 048
  11. CALCIUM POLYSTYRENE SULFONATE [Suspect]
     Active Substance: CALCIUM POLYSTYRENE SULFONATE
     Indication: Blood potassium increased
     Dosage: UNK
     Route: 048
  12. JANUVIA [Concomitant]
     Active Substance: SITAGLIPTIN PHOSPHATE
     Indication: Type 2 diabetes mellitus
     Dosage: UNK, QD; 0-1-0
     Route: 048
     Dates: start: 20240502
  13. JARDIANCE [Concomitant]
     Active Substance: EMPAGLIFLOZIN
     Indication: Type 2 diabetes mellitus
     Dosage: UNK, QD; 1-0-0
     Route: 048
     Dates: start: 20240502
  14. NEBIVOLOL HYDROCHLORIDE [Concomitant]
     Active Substance: NEBIVOLOL HYDROCHLORIDE
     Indication: Hypertension
     Dosage: UNK
     Route: 047
  15. PARAFFIN [Concomitant]
     Active Substance: PARAFFIN
     Indication: Product used for unknown indication
     Dosage: UNK
     Route: 065

REACTIONS (26)
  - Cardiac failure [Recovering/Resolving]
  - Pneumonia [Recovering/Resolving]
  - Renal failure [Recovering/Resolving]
  - Pulmonary oedema [Recovering/Resolving]
  - Loss of consciousness [Recovered/Resolved]
  - Cardiac disorder [Recovering/Resolving]
  - Bronchitis [Recovered/Resolved]
  - Diabetes mellitus inadequate control [Recovering/Resolving]
  - Blood potassium increased [Not Recovered/Not Resolved]
  - Hypertension [Recovering/Resolving]
  - Mineral deficiency [Recovered/Resolved]
  - Renal disorder [Recovering/Resolving]
  - Blood glucose increased [Not Recovered/Not Resolved]
  - Blood glucose fluctuation [Recovering/Resolving]
  - Dysarthria [Recovering/Resolving]
  - Illness [Recovering/Resolving]
  - Feeling abnormal [Recovering/Resolving]
  - Hypoglycaemia [Recovering/Resolving]
  - Hypoglycaemia [Recovered/Resolved]
  - Anaemia [Recovered/Resolved]
  - Diarrhoea [Recovered/Resolved]
  - Glycosylated haemoglobin increased [Recovering/Resolving]
  - Dyspepsia [Recovering/Resolving]
  - Dizziness [Recovering/Resolving]
  - Dizziness [Unknown]
  - Product storage error [Unknown]

NARRATIVE: CASE EVENT DATE: 20240101
